FAERS Safety Report 19792535 (Version 1)
Quarter: 2021Q3

REPORT INFORMATION
  Report Type: Report from Study
  Country: None (occurrence: US)
  Receive Date: 20210906
  Receipt Date: 20210906
  Transmission Date: 20211014
  Serious: Yes (Death)
  Sender: FDA-Public Use
  Company Number: US-UNICHEM PHARMACEUTICALS (USA) INC-UCM202108-000773

PATIENT
  Age: 57 Year
  Sex: Female

DRUGS (9)
  1. LAMOTRIGINE. [Suspect]
     Active Substance: LAMOTRIGINE
     Indication: TOXICITY TO VARIOUS AGENTS
     Dosage: UNKNOWN
  2. CITALOPRAM [Suspect]
     Active Substance: CITALOPRAM HYDROBROMIDE
     Indication: TOXICITY TO VARIOUS AGENTS
     Dosage: UNKNOWN
  3. MEMANTINE. [Suspect]
     Active Substance: MEMANTINE
     Indication: TOXICITY TO VARIOUS AGENTS
     Dosage: UNKNOWN
  4. M?CHLOROPHENYLPIPERAZINE. [Suspect]
     Active Substance: M-CHLOROPHENYLPIPERAZINE
     Indication: TOXICITY TO VARIOUS AGENTS
     Dosage: UNKNOWN
  5. DIPHENHYDRAMINE. [Suspect]
     Active Substance: DIPHENHYDRAMINE
     Indication: TOXICITY TO VARIOUS AGENTS
     Dosage: UNKNOWN
  6. QUETIAPINE. [Suspect]
     Active Substance: QUETIAPINE
     Indication: TOXICITY TO VARIOUS AGENTS
     Dosage: UNKNOWN
  7. TRAZODONE [Suspect]
     Active Substance: TRAZODONE HYDROCHLORIDE
     Indication: TOXICITY TO VARIOUS AGENTS
     Dosage: UNKNOWN
  8. VERAPAMIL [Suspect]
     Active Substance: VERAPAMIL HYDROCHLORIDE
     Indication: TOXICITY TO VARIOUS AGENTS
     Dosage: UNKNOWN
  9. ALCOHOL. [Suspect]
     Active Substance: ALCOHOL
     Indication: TOXICITY TO VARIOUS AGENTS
     Dosage: UNKNOWN

REACTIONS (3)
  - Completed suicide [Fatal]
  - Intentional overdose [Fatal]
  - Toxicity to various agents [Fatal]
